FAERS Safety Report 4421790-8 (Version None)
Quarter: 2004Q3

REPORT INFORMATION
  Report Type: 
  Country: None (occurrence: None)
  Receive Date: 20040806
  Receipt Date: 20040719
  Transmission Date: 20050211
  Serious: Yes (Hospitalization, Disabling, Other)
  Sender: FDA-Public Use
  Company Number: US_981214169

PATIENT
  Age: 31 Year
  Sex: Female
  Weight: 76 kg

DRUGS (4)
  1. HUMALOG [Suspect]
     Indication: DIABETES MELLITUS
     Dates: start: 19940101
  2. HUMULIN N [Suspect]
     Indication: DIABETES MELLITUS INSULIN-DEPENDENT
     Dates: start: 19820101, end: 20000101
  3. NOVOLIN 70/30 [Concomitant]
  4. LANTUS [Concomitant]

REACTIONS (29)
  - ASTHMA [None]
  - BLOOD GLUCOSE DECREASED [None]
  - BLOOD PRESSURE DECREASED [None]
  - DEHYDRATION [None]
  - DIABETIC KETOACIDOSIS [None]
  - DIABETIC NEUROPATHY [None]
  - DRUG HYPERSENSITIVITY [None]
  - DYSPNOEA [None]
  - ENDOMETRIOSIS [None]
  - GRAND MAL CONVULSION [None]
  - INJECTION SITE MASS [None]
  - INJECTION SITE URTICARIA [None]
  - LOSS OF CONSCIOUSNESS [None]
  - MEDICATION ERROR [None]
  - MOBILITY DECREASED [None]
  - NASOPHARYNGITIS [None]
  - NEUROPATHY PERIPHERAL [None]
  - OVARIAN CYST [None]
  - OVERDOSE [None]
  - PHARMACEUTICAL PRODUCT COMPLAINT [None]
  - PREGNANCY [None]
  - PREMATURE LABOUR [None]
  - PRURITUS [None]
  - SNEEZING [None]
  - SWOLLEN TONGUE [None]
  - TREMOR [None]
  - URTICARIA [None]
  - UTERINE DISORDER [None]
  - WEIGHT INCREASED [None]
